FAERS Safety Report 5874225-2 (Version None)
Quarter: 2008Q3

REPORT INFORMATION
  Report Type: 
  Country: None (occurrence: None)
  Receive Date: 20080908
  Receipt Date: 20080903
  Transmission Date: 20090109
  Serious: Yes (Other)
  Sender: FDA-Public Use
  Company Number: US-JNJFOC-20080803733

PATIENT
  Sex: Female
  Weight: 103.42 kg

DRUGS (2)
  1. ORTHO EVRA [Suspect]
     Indication: CONTRACEPTION
     Route: 062
  2. NAPROSYN [Concomitant]

REACTIONS (3)
  - CELLULITIS [None]
  - NEURALGIC AMYOTROPHY [None]
  - THROMBOPHLEBITIS SUPERFICIAL [None]
